FAERS Safety Report 10043505 (Version 1)
Quarter: 2014Q1

REPORT INFORMATION
  Report Type: Spontaneous
  Country: US (occurrence: US)
  Receive Date: 20140328
  Receipt Date: 20140328
  Transmission Date: 20141002
  Serious: No
  Sender: FDA-Public Use
  Company Number: US-PFIZER INC-2014087795

PATIENT
  Age: 52 Year
  Sex: Female
  Weight: 91.16 kg

DRUGS (5)
  1. NICOTROL INHALER [Suspect]
     Indication: SMOKING CESSATION THERAPY
     Dosage: 10 MG, AS NEEDED
     Dates: start: 20140326
  2. RISPERIDONE [Concomitant]
     Dosage: 4 MG, UNK
  3. TRAZODONE [Concomitant]
     Dosage: 100 MG, UNK
  4. NEXIUM [Concomitant]
     Dosage: 40 MG, UNK
  5. NORVASC [Concomitant]
     Dosage: 10 MG, UNK

REACTIONS (3)
  - Cough [Unknown]
  - Oropharyngeal pain [Unknown]
  - Throat irritation [Unknown]
